FAERS Safety Report 11994996 (Version 3)
Quarter: 2016Q1

REPORT INFORMATION
  Report Type: Report from Study
  Country: TW (occurrence: TW)
  Receive Date: 20160203
  Receipt Date: 20160226
  Transmission Date: 20160526
  Serious: Yes (Other)
  Sender: FDA-Public Use
  Company Number: TW-JNJFOC-20160123900

PATIENT
  Age: 60 Year
  Sex: Male
  Weight: 84 kg

DRUGS (7)
  1. SIMPONI [Suspect]
     Active Substance: GOLIMUMAB
     Indication: ANKYLOSING SPONDYLITIS
     Route: 058
     Dates: start: 20131031, end: 20160128
  2. FUBIFEN PAP [Concomitant]
     Indication: ANKYLOSING SPONDYLITIS
     Dosage: 40MG/10GM QDPRN.
     Route: 065
     Dates: start: 20140807
  3. MOBIC [Concomitant]
     Active Substance: MELOXICAM
     Indication: ANKYLOSING SPONDYLITIS
     Route: 048
     Dates: start: 20150716
  4. EXFORGE [Concomitant]
     Active Substance: AMLODIPINE BESYLATE\VALSARTAN
     Indication: HYPERTENSION
     Dosage: 5/80MG
     Route: 048
     Dates: start: 20160120
  5. MECLIZINE HCL [Concomitant]
     Indication: DIZZINESS
     Route: 048
     Dates: start: 20160106
  6. NICAMETATE CITRATE [Concomitant]
     Indication: CEREBROVASCULAR INSUFFICIENCY
     Route: 048
     Dates: start: 20130122
  7. NICAMETATE CITRATE [Concomitant]
     Indication: PERIPHERAL VASCULAR DISORDER
     Route: 048
     Dates: start: 20130122

REACTIONS (1)
  - Phaeochromocytoma [Recovered/Resolved]

NARRATIVE: CASE EVENT DATE: 201401
